FAERS Safety Report 7769843-0 (Version None)
Quarter: 2011Q3

REPORT INFORMATION
  Report Type: 
  Country: None (occurrence: None)
  Receive Date: 20110922
  Receipt Date: 20100812
  Transmission Date: 20111222
  Serious: No
  Sender: FDA-Public Use
  Company Number: US-ASTRAZENECA-2010SE38013

PATIENT
  Age: 35 Year
  Sex: Male
  Weight: 83.5 kg

DRUGS (7)
  1. SEROQUEL [Suspect]
     Indication: BRAIN INJURY
     Route: 048
     Dates: start: 20050101
  2. SEROQUEL [Suspect]
     Indication: MOOD SWINGS
     Route: 048
     Dates: start: 20050101
  3. BACLOFIN [Concomitant]
  4. CETALAPRIM [Concomitant]
  5. SEROQUEL [Suspect]
     Route: 048
  6. SEROQUEL [Suspect]
     Route: 048
  7. LOTREL [Concomitant]

REACTIONS (3)
  - FEELING ABNORMAL [None]
  - DRUG DOSE OMISSION [None]
  - AGGRESSION [None]
